FAERS Safety Report 7511772-1 (Version None)
Quarter: 2011Q2

REPORT INFORMATION
  Report Type: 
  Country: None (occurrence: None)
  Receive Date: 20110531
  Receipt Date: 20110520
  Transmission Date: 20111010
  Serious: Yes (Other)
  Sender: FDA-Public Use
  Company Number: US-JNJFOC-20110511642

PATIENT
  Age: 80 Year
  Sex: Male
  Weight: 79.38 kg

DRUGS (3)
  1. EXTRA STRENGTH TYLENOL PM [Suspect]
     Indication: INSOMNIA
     Route: 048
  2. PROBENECID [Concomitant]
     Indication: GOUT
     Route: 065
     Dates: start: 20060101
  3. ANTIHYPERTENSIVE [Concomitant]
     Indication: HYPERTENSION
     Route: 065
     Dates: start: 19960101

REACTIONS (2)
  - EMPHYSEMA [None]
  - INCORRECT DRUG ADMINISTRATION DURATION [None]
